FAERS Safety Report 8183705-9 (Version None)
Quarter: 2012Q1

REPORT INFORMATION
  Report Type: 
  Country: None (occurrence: None)
  Receive Date: 20120305
  Receipt Date: 20120229
  Transmission Date: 20120608
  Serious: Yes (Death)
  Sender: FDA-Public Use
  Company Number: PHEH2012US004861

PATIENT
  Sex: Female

DRUGS (10)
  1. FOSAMAX [Concomitant]
     Dosage: 05 MG, UNK
  2. SIMVASTATIN [Concomitant]
     Dosage: 20 MG, UNK
  3. SYNTHROID [Concomitant]
     Dosage: 25 UG, UNK
  4. ARIMIDEX [Concomitant]
     Dosage: 01 MG, UNK
  5. CALCIUM [Concomitant]
  6. VITAMIN D [Concomitant]
     Dosage: 1000 U, UNK
  7. GLEEVEC [Suspect]
     Dosage: 400 MG, QD
     Route: 048
  8. DESMOPRESSIN ACETATE [Concomitant]
     Dosage: 0.1 MG, UNK
  9. HYDROCORT [Concomitant]
     Dosage: 10 MG, UNK
  10. OMEPRAZOLE [Concomitant]
     Dosage: 20 MG, UNK

REACTIONS (1)
  - DEATH [None]
